FAERS Safety Report 4978098-1 (Version None)
Quarter: 2006Q2

REPORT INFORMATION
  Report Type: 
  Country: None (occurrence: None)
  Receive Date: 20060417
  Receipt Date: 20060410
  Transmission Date: 20061013
  Serious: Yes (Death)
  Sender: FDA-Public Use
  Company Number: S06-USA-00506-01

PATIENT
  Age: 23 Year
  Sex: Male
  Weight: 74.3899 kg

DRUGS (3)
  1. LEXAPRO [Suspect]
     Indication: DEPRESSION
     Dosage: 10 MG QD PO
     Route: 048
     Dates: start: 20051023, end: 20051205
  2. COCAINE [Suspect]
     Dates: end: 20051205
  3. XANAX [Concomitant]

REACTIONS (10)
  - AGITATION [None]
  - BACK PAIN [None]
  - BODY TEMPERATURE INCREASED [None]
  - DRUG ABUSER [None]
  - DRUG SCREEN POSITIVE [None]
  - DRUG WITHDRAWAL SYNDROME [None]
  - ERYTHEMA [None]
  - SEROTONIN SYNDROME [None]
  - VENTRICULAR FIBRILLATION [None]
  - VENTRICULAR TACHYCARDIA [None]
